FAERS Safety Report 17279279 (Version 3)
Quarter: 2020Q2

REPORT INFORMATION
  Report Type: Report from Study
  Country: US (occurrence: US)
  Receive Date: 20200116
  Receipt Date: 20200428
  Transmission Date: 20200713
  Serious: Yes (Other)
  Sender: FDA-Public Use
  Company Number: NVSC2020US006232

PATIENT
  Age: 74 Year
  Sex: Male

DRUGS (2)
  1. ENTRESTO [Suspect]
     Active Substance: SACUBITRIL\VALSARTAN
     Dosage: 100 MG, BID (49/51 MG)
     Route: 048
     Dates: start: 2019
  2. ENTRESTO [Suspect]
     Active Substance: SACUBITRIL\VALSARTAN
     Indication: CARDIAC FAILURE CONGESTIVE
     Dosage: 50 MG, BID (24/26 MG)
     Route: 048
     Dates: start: 2019

REACTIONS (5)
  - Chronic obstructive pulmonary disease [Unknown]
  - Sleep disorder [Not Recovered/Not Resolved]
  - Cough [Unknown]
  - Heart rate decreased [Recovering/Resolving]
  - Abdominal discomfort [Recovering/Resolving]

NARRATIVE: CASE EVENT DATE: 201912
